FAERS Safety Report 4334975-6 (Version None)
Quarter: 2004Q2

REPORT INFORMATION
  Report Type: 
  Country: None (occurrence: None)
  Receive Date: 20040408
  Receipt Date: 20040212
  Transmission Date: 20050107
  Serious: Yes (Death)
  Sender: FDA-Public Use
  Company Number: JP-ROCHE-358761

PATIENT
  Age: 85 Year
  Sex: Male

DRUGS (8)
  1. ROCEPHIN [Suspect]
     Route: 041
     Dates: start: 20040204, end: 20040210
  2. MINOMYCIN [Concomitant]
     Indication: DRUG USE FOR UNKNOWN INDICATION
     Route: 041
  3. UNKNOWN DRUG [Concomitant]
     Indication: NUTRITIONAL SUPPORT
     Dosage: DRUG NAME REPORTED AS ^FULCALIQ 1 (HIGH-ENERGY FLUID)^.
     Route: 041
     Dates: start: 20040204, end: 20040210
  4. TRACE ELEMENT [Concomitant]
     Dosage: DRUG NAME REPORTED AS ^CIZANARINE N (MICROELEMENT)^.
     Route: 041
     Dates: start: 20040204, end: 20040210
  5. UNKNOWN DRUG [Concomitant]
     Dosage: DRUG NAME REPORTED AS ^KALOSGEN (MONOAMMONIUM GLYCYRRHIZINATE, L-CYSTEINE)^.
     Route: 041
     Dates: start: 20040204, end: 20040210
  6. FUROSEMIDE [Concomitant]
     Indication: DRUG USE FOR UNKNOWN INDICATION
     Route: 041
     Dates: start: 20040204, end: 20040210
  7. POTASSIUM L-ASPARTATE [Concomitant]
     Dosage: TRADE NAME REPORTED AS ^ARMOKARIN^.
     Route: 041
     Dates: start: 20040204, end: 20040210
  8. GASTER [Concomitant]
     Route: 041
     Dates: start: 20040204, end: 20040210

REACTIONS (4)
  - INFLAMMATION [None]
  - INTERSTITIAL LUNG DISEASE [None]
  - LIVER DISORDER [None]
  - RESPIRATORY FAILURE [None]
